FAERS Safety Report 17302991 (Version 1)
Quarter: 2020Q1

REPORT INFORMATION
  Report Type: Report from Study
  Country: US (occurrence: US)
  Receive Date: 20200122
  Receipt Date: 20200122
  Transmission Date: 20200409
  Serious: Yes (Other)
  Sender: FDA-Public Use
  Company Number: US-BRISTOL-MYERS SQUIBB COMPANY-BMS-2020-004180

PATIENT
  Age: 74 Year
  Sex: Female

DRUGS (1)
  1. APIXABAN [Suspect]
     Active Substance: APIXABAN
     Indication: PRODUCT USED FOR UNKNOWN INDICATION
     Route: 065

REACTIONS (7)
  - Ear disorder [Unknown]
  - Pain in extremity [Unknown]
  - Eye disorder [Unknown]
  - Bladder disorder [Unknown]
  - Swelling [Unknown]
  - Lymphadenopathy [Unknown]
  - Cellulitis [Unknown]

NARRATIVE: CASE EVENT DATE: 20200117
